FAERS Safety Report 15363167 (Version 2)
Quarter: 2018Q4

REPORT INFORMATION
  Report Type: Spontaneous
  Country: US (occurrence: US)
  Receive Date: 20180907
  Receipt Date: 20181002
  Transmission Date: 20190204
  Serious: Yes (Other)
  Sender: FDA-Public Use
  Company Number: US-NOVOPROD-619594

PATIENT
  Sex: Male

DRUGS (1)
  1. NOVOLOG [Suspect]
     Active Substance: INSULIN ASPART
     Indication: DIABETES MELLITUS
     Dosage: UNK, TID
     Route: 058

REACTIONS (3)
  - Lung disorder [Unknown]
  - Hydrocephalus [Unknown]
  - Cardiovascular disorder [Unknown]
